FAERS Safety Report 5288976-4 (Version None)
Quarter: 2007Q1

REPORT INFORMATION
  Report Type: 
  Country: None (occurrence: None)
  Receive Date: 20070117
  Receipt Date: 20060710
  Transmission Date: 20070707
  Serious: Yes (Hospitalization)
  Sender: FDA-Public Use
  Company Number: 455046

PATIENT
  Sex: Female
  Weight: 27 kg

DRUGS (1)
  1. ROCEPHIN [Suspect]
     Indication: DRUG USE FOR UNKNOWN INDICATION
     Dosage: 1 GRAM INTRAVENOUS
     Route: 042
     Dates: start: 20060715, end: 20060715

REACTIONS (2)
  - CONVULSION [None]
  - INJECTION SITE RASH [None]
